FAERS Safety Report 11243956 (Version 1)
Quarter: 2015Q3

REPORT INFORMATION
  Report Type: Spontaneous
  Country: US (occurrence: US)
  Receive Date: 20150707
  Receipt Date: 20150707
  Transmission Date: 20151125
  Serious: Yes (Other)
  Sender: FDA-Public Use
  Company Number: US-BAYER-2015-369179

PATIENT
  Age: 73 Year
  Sex: Female
  Weight: 68 kg

DRUGS (1)
  1. CITRACAL [Suspect]
     Active Substance: CALCIUM CITRATE
     Dosage: UNK
     Dates: start: 201506, end: 20150615

REACTIONS (2)
  - Product use issue [None]
  - Choking [Recovered/Resolved]

NARRATIVE: CASE EVENT DATE: 20150615
